FAERS Safety Report 12866013 (Version 2)
Quarter: 2016Q4

REPORT INFORMATION
  Report Type: Spontaneous
  Country: BR (occurrence: BR)
  Receive Date: 20161020
  Receipt Date: 20161220
  Transmission Date: 20170207
  Serious: Yes (Other)
  Sender: FDA-Public Use
  Company Number: BR-PFIZER INC-2016486952

PATIENT
  Age: 31 Year
  Sex: Male
  Weight: 120 kg

DRUGS (1)
  1. GEODON [Suspect]
     Active Substance: ZIPRASIDONE HYDROCHLORIDE\ZIPRASIDONE MESYLATE
     Indication: BIPOLAR DISORDER
     Dosage: 1 TABLET (STRENGTH OF 80 MG) PER DAY
     Route: 048
     Dates: start: 200809

REACTIONS (1)
  - Drug dependence [Not Recovered/Not Resolved]
